FAERS Safety Report 21388378 (Version 2)
Quarter: 2022Q4

REPORT INFORMATION
  Report Type: Report from Study
  Country: IT (occurrence: IT)
  Receive Date: 20220928
  Receipt Date: 20221004
  Transmission Date: 20230112
  Serious: Yes (Other)
  Sender: FDA-Public Use
  Company Number: IT-GILEAD-2022-0588849

PATIENT
  Age: 43 Year
  Sex: Female
  Weight: 59 kg

DRUGS (2)
  1. SACITUZUMAB GOVITECAN [Suspect]
     Active Substance: SACITUZUMAB GOVITECAN
     Indication: Triple negative breast cancer
     Dosage: 10 MG/KG, DAY 1 AND 8 OF 21-DAY TREATMENT CYCLES
     Route: 065
     Dates: start: 20220304, end: 20220729
  2. XANAX [Concomitant]
     Active Substance: ALPRAZOLAM

REACTIONS (3)
  - Disease progression [Unknown]
  - Off label use [Not Recovered/Not Resolved]
  - UGT1A1 gene mutation [Unknown]

NARRATIVE: CASE EVENT DATE: 20220805
